FAERS Safety Report 9174161 (Version 2)
Quarter: 2013Q2

REPORT INFORMATION
  Report Type: Spontaneous
  Country: US (occurrence: US)
  Receive Date: 20130320
  Receipt Date: 20130422
  Transmission Date: 20140414
  Serious: No
  Sender: FDA-Public Use
  Company Number: US-PFIZER INC-2013090472

PATIENT
  Sex: Male

DRUGS (2)
  1. FLECTOR [Suspect]
     Indication: MUSCULOSKELETAL PAIN
     Dosage: UNK
     Route: 062
  2. FLECTOR [Suspect]
     Indication: NECK PAIN

REACTIONS (2)
  - Drug ineffective [Unknown]
  - Product adhesion issue [Unknown]
